FAERS Safety Report 4688486-9 (Version None)
Quarter: 2005Q3

REPORT INFORMATION
  Report Type: 
  Country: None (occurrence: None)
  Receive Date: 20050613
  Receipt Date: 20050531
  Transmission Date: 20060218
  Serious: Yes (Hospitalization, Other)
  Sender: FDA-Public Use
  Company Number: GB-JNJFOC-20050600017

PATIENT
  Sex: Female
  Weight: 83 kg

DRUGS (9)
  1. REMICADE [Suspect]
     Route: 042
  2. METHOTREXATE [Concomitant]
     Route: 065
  3. FOLIC ACID [Concomitant]
     Route: 065
  4. PREDNISOLONE [Concomitant]
     Route: 065
  5. CELEBREX [Concomitant]
     Route: 065
  6. ACETAMINOPHEN W/ CODEINE [Concomitant]
     Route: 065
  7. TYLEX [Concomitant]
     Route: 065
  8. TYLEX [Concomitant]
     Route: 065
  9. CALCICHEW [Concomitant]
     Route: 065

REACTIONS (2)
  - ARTHRITIS INFECTIVE [None]
  - SALMONELLOSIS [None]
